FAERS Safety Report 13264557 (Version 1)
Quarter: 2017Q1

REPORT INFORMATION
  Report Type: Spontaneous
  Country: US (occurrence: US)
  Receive Date: 20170223
  Receipt Date: 20170223
  Transmission Date: 20170428
  Serious: Yes (Hospitalization)
  Sender: FDA-Public Use
  Company Number: None

PATIENT
  Age: 61 Year
  Sex: Female
  Weight: 63.2 kg

DRUGS (24)
  1. CLONIDINE. [Concomitant]
     Active Substance: CLONIDINE
  2. GABAPENTIN. [Concomitant]
     Active Substance: GABAPENTIN
  3. OXYCODONE [Concomitant]
     Active Substance: OXYCODONE
  4. SUMATRIPTAN. [Concomitant]
     Active Substance: SUMATRIPTAN
  5. DOCUSATE CALCIUM. [Concomitant]
     Active Substance: DOCUSATE CALCIUM
  6. PROPRANOLOL [Concomitant]
     Active Substance: PROPRANOLOL HYDROCHLORIDE
  7. TRAZODONE [Concomitant]
     Active Substance: TRAZODONE HYDROCHLORIDE
  8. HYDROXYZINE [Concomitant]
     Active Substance: HYDROXYZINE HYDROCHLORIDE
  9. NASONEX [Concomitant]
     Active Substance: MOMETASONE FUROATE
  10. ONDANSETRON [Concomitant]
     Active Substance: ONDANSETRON
  11. PRESERVATIVE-FREE ARTIFICIAL TEARS [Concomitant]
  12. TEMAZEPAM. [Concomitant]
     Active Substance: TEMAZEPAM
  13. EPCLUSA [Suspect]
     Active Substance: SOFOSBUVIR\VELPATASVIR
     Indication: HEPATITIS C
     Dosage: 10/12/2016-01/29/2016 400MG/ 100MG DAILY ORAL
     Route: 048
  14. ASPIRIN. [Concomitant]
     Active Substance: ASPIRIN
  15. EPINEPHRINE. [Concomitant]
     Active Substance: EPINEPHRINE
  16. LISINOPRIL. [Concomitant]
     Active Substance: LISINOPRIL
  17. TOPIRAMATE. [Concomitant]
     Active Substance: TOPIRAMATE
  18. LIDOCAINE. [Concomitant]
     Active Substance: LIDOCAINE
  19. OMEPRAZOLE. [Concomitant]
     Active Substance: OMEPRAZOLE
  20. CYCLOBENZAPRINE [Concomitant]
     Active Substance: CYCLOBENZAPRINE
  21. FLUTICASONE. [Concomitant]
     Active Substance: FLUTICASONE
  22. LEVETIRACETAM. [Concomitant]
     Active Substance: LEVETIRACETAM
  23. LORAZEPAM. [Concomitant]
     Active Substance: LORAZEPAM
  24. SUCRALFATE. [Concomitant]
     Active Substance: SUCRALFATE

REACTIONS (2)
  - Epistaxis [None]
  - Haemoptysis [None]
